FAERS Safety Report 9592049 (Version 1)
Quarter: 2013Q4

REPORT INFORMATION
  Report Type: Spontaneous
  Country: US (occurrence: US)
  Receive Date: 20131004
  Receipt Date: 20131004
  Transmission Date: 20140711
  Serious: No
  Sender: FDA-Public Use
  Company Number: US-BIOGENIDEC-2013BI092446

PATIENT
  Sex: Male

DRUGS (1)
  1. AVONEX [Suspect]
     Indication: MULTIPLE SCLEROSIS
     Route: 030
     Dates: start: 20041210, end: 20060502

REACTIONS (3)
  - Loss of control of legs [Recovered/Resolved]
  - Vertigo [Recovered/Resolved]
  - Influenza like illness [Recovered/Resolved]
